FAERS Safety Report 8406929-1 (Version None)
Quarter: 2012Q2

REPORT INFORMATION
  Report Type: 
  Country: None (occurrence: None)
  Receive Date: 20120604
  Receipt Date: 20120530
  Transmission Date: 20120825
  Serious: Yes (Hospitalization)
  Sender: FDA-Public Use
  Company Number: US-PFIZER INC-2012131502

PATIENT
  Sex: Female
  Weight: 90.7 kg

DRUGS (4)
  1. REVLIMID [Suspect]
     Indication: MULTIPLE MYELOMA
     Dosage: 25 UNK, WEEKLY
     Route: 048
     Dates: start: 20111208
  2. ZOSYN [Suspect]
  3. DECADRON [Suspect]
     Indication: MULTIPLE MYELOMA
     Dosage: UNK
     Route: 048
     Dates: start: 20111208
  4. MLN9708 [Suspect]
     Indication: MULTIPLE MYELOMA
     Dosage: 2 UNK, WEEKLY
     Route: 048
     Dates: start: 20111208

REACTIONS (2)
  - RASH [None]
  - PNEUMONIA [None]
